FAERS Safety Report 5256460-X (Version None)
Quarter: 2007Q1

REPORT INFORMATION
  Report Type: 
  Country: None (occurrence: None)
  Receive Date: 20070306
  Receipt Date: 20070305
  Transmission Date: 20070707
  Serious: Yes (Other)
  Sender: FDA-Public Use
  Company Number: CA-GLAXOSMITHKLINE-A0632501A

PATIENT
  Age: 58 Year
  Sex: Female

DRUGS (7)
  1. CLAVULIN [Suspect]
     Indication: DRUG USE FOR UNKNOWN INDICATION
     Dosage: 875MG TWICE PER DAY
     Route: 048
     Dates: start: 20061212, end: 20061227
  2. NIASPAN [Concomitant]
     Route: 048
  3. METFORMIN HCL [Concomitant]
     Route: 065
  4. AMARYL [Concomitant]
  5. ACTOS [Concomitant]
  6. ASPIRIN [Concomitant]
     Route: 048
  7. UNKNOWN MEDICATION [Concomitant]

REACTIONS (4)
  - EYE DISORDER [None]
  - VISION BLURRED [None]
  - VISUAL ACUITY REDUCED [None]
  - VISUAL ACUITY TESTS ABNORMAL [None]
